FAERS Safety Report 24463926 (Version 1)
Quarter: 2024Q4

REPORT INFORMATION
  Report Type: Report from Study
  Country: US (occurrence: US)
  Receive Date: 20241018
  Receipt Date: 20241018
  Transmission Date: 20250115
  Serious: No
  Sender: ROCHE
  Company Number: US-ROCHE-3497132

PATIENT
  Age: 59 Year
  Sex: Male
  Weight: 99.79 kg

DRUGS (2)
  1. XOLAIR [Suspect]
     Active Substance: OMALIZUMAB
     Indication: Idiopathic urticaria
     Route: 058
     Dates: start: 20210405
  2. XOLAIR [Suspect]
     Active Substance: OMALIZUMAB
     Indication: Urticaria pressure
     Dosage: 2 150MG SHOTS IN THE SAME ARM ADMINISTERED AT THE DOCTOR^S OFFICE
     Route: 058

REACTIONS (2)
  - Pituitary tumour [Not Recovered/Not Resolved]
  - Medical device pain [Unknown]

NARRATIVE: CASE EVENT DATE: 20230801
